FAERS Safety Report 4305172-5 (Version None)
Quarter: 2004Q1

REPORT INFORMATION
  Report Type: 
  Country: None (occurrence: None)
  Receive Date: 20040225
  Receipt Date: 20040225
  Transmission Date: 20041129
  Serious: No
  Sender: FDA-Public Use
  Company Number: None

PATIENT

DRUGS (1)
  1. 4 WAY FAST ACTING [Suspect]
     Dosage: NASAL, DIALATOR
     Route: 045
     Dates: start: 20011201

REACTIONS (1)
  - FEELING ABNORMAL [None]
